FAERS Safety Report 4902883-5 (Version None)
Quarter: 2006Q1

REPORT INFORMATION
  Report Type: 
  Country: None (occurrence: None)
  Receive Date: 20060207
  Receipt Date: 20060120
  Transmission Date: 20060701
  Serious: Yes (Other)
  Sender: FDA-Public Use
  Company Number: AU-BOEHRINGER INGELHEIM PHARMACEUTICALS, INC.-2006-BP-00762AU

PATIENT
  Sex: Male

DRUGS (1)
  1. TIPRANAVIR / RITONAVIR CAPSULES, SOFTGELATIN [Suspect]
     Indication: HIV INFECTION
     Dosage: TPV/RTV 1000/400MG
     Route: 048
     Dates: start: 20051007, end: 20051118

REACTIONS (2)
  - DIARRHOEA [None]
  - FAECAL INCONTINENCE [None]
